FAERS Safety Report 7094528-6 (Version None)
Quarter: 2010Q4

REPORT INFORMATION
  Report Type: 
  Country: None (occurrence: None)
  Receive Date: 20101110
  Receipt Date: 20101103
  Transmission Date: 20110411
  Serious: Yes (Other)
  Sender: FDA-Public Use
  Company Number: US-BAXTER-2010BH027831

PATIENT

DRUGS (8)
  1. CYCLOPHOSPHAMIDE [Suspect]
     Indication: CHRONIC LYMPHOCYTIC LEUKAEMIA
     Route: 065
  2. ALEMTUZUMAB [Suspect]
     Indication: CHRONIC LYMPHOCYTIC LEUKAEMIA
     Route: 042
  3. FLUDARABINE [Suspect]
     Indication: CHRONIC LYMPHOCYTIC LEUKAEMIA
     Route: 065
  4. RITUXIMAB [Suspect]
     Indication: CHRONIC LYMPHOCYTIC LEUKAEMIA
     Route: 065
  5. PEGYLATED FILGASTRIM [Concomitant]
     Indication: PROPHYLAXIS
     Route: 058
  6. ALLOPURINOL [Concomitant]
     Indication: PROPHYLAXIS
     Route: 065
  7. VALACYCLOVIR [Concomitant]
     Indication: PROPHYLAXIS
     Route: 065
  8. TMP/SMX/DS [Concomitant]
     Indication: PROPHYLAXIS
     Route: 065

REACTIONS (1)
  - CYTOMEGALOVIRUS INFECTION [None]
